FAERS Safety Report 9788643 (Version 1)
Quarter: 2013Q4

REPORT INFORMATION
  Report Type: Spontaneous
  Country: KR (occurrence: KR)
  Receive Date: 20131230
  Receipt Date: 20131230
  Transmission Date: 20140711
  Serious: Yes (Death)
  Sender: FDA-Public Use
  Company Number: KR-JNJFOC-20131216879

PATIENT
  Age: 56 Year
  Sex: Male

DRUGS (6)
  1. FINIBAX [Suspect]
     Indication: PNEUMONIA
     Route: 041
     Dates: start: 20130131, end: 20130203
  2. VANCOMYCIN [Concomitant]
     Indication: PNEUMONIA
     Route: 065
     Dates: start: 20130123, end: 20130203
  3. MEROPENEM [Concomitant]
     Indication: PNEUMONIA
     Route: 065
     Dates: start: 20130111, end: 20130203
  4. MUTERAN [Concomitant]
     Indication: PNEUMONIA
     Route: 065
     Dates: start: 20130109, end: 20130203
  5. URSODEOXYCHOLIC ACID [Concomitant]
     Indication: PROPHYLAXIS
     Route: 065
     Dates: start: 20020916, end: 20130203
  6. LEGALON [Concomitant]
     Indication: PROPHYLAXIS
     Route: 065
     Dates: start: 20020916, end: 20130203

REACTIONS (1)
  - Shock [Fatal]
